FAERS Safety Report 9840336 (Version 1)
Quarter: 2013Q4

REPORT INFORMATION
  Report Type: Spontaneous
  Country: US (occurrence: None)
  Receive Date: 20131211
  Receipt Date: 20131211
  Transmission Date: 20140711
  Serious: Yes (Other)
  Sender: FDA-Public Use
  Company Number: ALL1-2012-05308

PATIENT
  Age: 40 Year
  Sex: Male
  Weight: 107 kg

DRUGS (3)
  1. FIRAZYR [Suspect]
     Indication: ENZYME ABNORMALITY
     Route: 058
     Dates: start: 20111129
  2. WELLBUTRIN XR (BUPROPION HYDROCHLORIDE) [Concomitant]
  3. DANAZOL (DANAZOL) [Concomitant]

REACTIONS (3)
  - Injection site erythema [None]
  - Injection site warmth [None]
  - Off label use [None]
